FAERS Safety Report 7250866-5 (Version None)
Quarter: 2011Q1

REPORT INFORMATION
  Report Type: 
  Country: None (occurrence: None)
  Receive Date: 20110128
  Receipt Date: 20110124
  Transmission Date: 20110831
  Serious: Yes (Hospitalization)
  Sender: FDA-Public Use
  Company Number: A0779679A

PATIENT
  Age: 68 Year
  Sex: Female

DRUGS (5)
  1. AVANDIA [Suspect]
     Dosage: 8MG PER DAY
     Route: 048
     Dates: start: 20060301, end: 20080701
  2. AMLODIPINE [Concomitant]
  3. LIPITOR [Concomitant]
  4. METOPROLOL [Concomitant]
  5. ACCUPRIL [Concomitant]

REACTIONS (6)
  - WEIGHT DECREASED [None]
  - ALOPECIA [None]
  - VOMITING [None]
  - BLOOD GLUCOSE INCREASED [None]
  - HEADACHE [None]
  - CARDIAC DISORDER [None]
